FAERS Safety Report 19706577 (Version 1)
Quarter: 2021Q3

REPORT INFORMATION
  Report Type: Spontaneous
  Country: US (occurrence: US)
  Receive Date: 20210817
  Receipt Date: 20210817
  Transmission Date: 20211014
  Serious: Yes (Other)
  Sender: FDA-Public Use
  Company Number: US-GLAXOSMITHKLINE-US2021GSK171643

PATIENT
  Sex: Female

DRUGS (7)
  1. ZANTAC [Suspect]
     Active Substance: RANITIDINE HYDROCHLORIDE
     Indication: CHOLELITHIASIS
     Dosage: UNK UNK, QD
     Route: 065
     Dates: start: 198501, end: 200601
  2. RANITIDINE CAPSULE [Suspect]
     Active Substance: RANITIDINE
     Indication: CHOLELITHIASIS
     Dosage: UNK UNK, QD
     Route: 065
     Dates: start: 199401, end: 200401
  3. RANITIDINE. [Suspect]
     Active Substance: RANITIDINE
     Indication: CHOLELITHIASIS
     Dosage: UNK UNK, QD
     Route: 065
     Dates: start: 199401, end: 200401
  4. ZANTAC [Suspect]
     Active Substance: RANITIDINE HYDROCHLORIDE
     Indication: CHOLELITHIASIS
     Dosage: UNK UNK, QD
     Route: 065
     Dates: start: 198501, end: 200601
  5. ZANTAC [Suspect]
     Active Substance: RANITIDINE HYDROCHLORIDE
     Indication: CHOLELITHIASIS
     Dosage: UNK UNK, QD
     Route: 065
     Dates: start: 198501, end: 200601
  6. RANITIDINE. [Suspect]
     Active Substance: RANITIDINE
     Indication: CHOLELITHIASIS
     Dosage: UNK, QD
     Route: 065
     Dates: start: 199401, end: 200401
  7. RANITIDINE. [Suspect]
     Active Substance: RANITIDINE
     Indication: CHOLELITHIASIS
     Dosage: UNK, QD
     Route: 065
     Dates: start: 199401, end: 200401

REACTIONS (1)
  - Colorectal cancer [Unknown]
